FAERS Safety Report 8225660-9 (Version None)
Quarter: 2012Q1

REPORT INFORMATION
  Report Type: 
  Country: None (occurrence: None)
  Receive Date: 20120321
  Receipt Date: 20120316
  Transmission Date: 20120608
  Serious: Yes (Other)
  Sender: FDA-Public Use
  Company Number: US-PFIZER INC-2012070088

PATIENT
  Sex: Female
  Weight: 56.689 kg

DRUGS (7)
  1. LYRICA [Suspect]
     Indication: FIBROMYALGIA
     Dosage: 150 MG, 3X/DAY
     Route: 048
     Dates: start: 20101001, end: 20120101
  2. LYRICA [Suspect]
     Indication: ARTHRITIS
  3. OXYCODONE [Concomitant]
     Indication: PAIN
     Dosage: 325 MG, AS NEEDED
  4. VALIUM [Concomitant]
     Indication: NERVE INJURY
     Dosage: 10 MG, 3X/DAY
  5. VALIUM [Concomitant]
     Indication: MUSCLE SPASMS
  6. LYRICA [Suspect]
     Indication: SPONDYLITIS
  7. VALIUM [Concomitant]
     Indication: ANXIETY

REACTIONS (1)
  - CONVULSION [None]
